FAERS Safety Report 5776520-4 (Version None)
Quarter: 2008Q2

REPORT INFORMATION
  Report Type: 
  Country: None (occurrence: None)
  Receive Date: 20080616
  Receipt Date: 20080604
  Transmission Date: 20081010
  Serious: Yes (Hospitalization)
  Sender: FDA-Public Use
  Company Number: DSA_31792_2008

PATIENT
  Sex: Male
  Weight: 67.1324 kg

DRUGS (4)
  1. ATIVAN [Suspect]
     Indication: DRUG USE FOR UNKNOWN INDICATION
     Dosage: 1 MG 1X/6 HOURS ORAL
     Dates: end: 20080501
  2. REVLIMID [Suspect]
     Indication: MULTIPLE MYELOMA
     Dosage: 10 MG EVERY OTHER DAY ORAL, 25 MG EVERY OTHER DAY ORAL
     Route: 048
     Dates: start: 20080214, end: 20080312
  3. REVLIMID [Suspect]
     Indication: MULTIPLE MYELOMA
     Dosage: 10 MG EVERY OTHER DAY ORAL, 25 MG EVERY OTHER DAY ORAL
     Route: 048
     Dates: start: 20080318
  4. ASPIRIN [Concomitant]

REACTIONS (3)
  - PULMONARY THROMBOSIS [None]
  - RASH [None]
  - SOMNOLENCE [None]
